FAERS Safety Report 22539405 (Version 2)
Quarter: 2024Q3

REPORT INFORMATION
  Report Type: Report from Study
  Country: US (occurrence: US)
  Receive Date: 20230609
  Receipt Date: 20240924
  Transmission Date: 20241016
  Serious: Yes (Disabling, Other)
  Sender: NOVARTIS
  Company Number: US-002147023-NVSC2023US127632

PATIENT
  Age: 59 Year
  Sex: Female
  Weight: 81.19 kg

DRUGS (1)
  1. ENTRESTO [Suspect]
     Active Substance: SACUBITRIL\VALSARTAN
     Indication: Cardiac failure congestive
     Dosage: 1 DOSAGE FORM, BID (24.26 MG)
     Route: 048
     Dates: start: 202004

REACTIONS (12)
  - Rebound effect [Not Recovered/Not Resolved]
  - Fall [Not Recovered/Not Resolved]
  - Product use issue [Not Recovered/Not Resolved]
  - Cardiac failure [Unknown]
  - Chest discomfort [Unknown]
  - Chest pain [Unknown]
  - Anxiety [Unknown]
  - Dizziness [Unknown]
  - Symptom recurrence [Unknown]
  - Hypertension [Unknown]
  - Headache [Unknown]
  - Pain [Unknown]

NARRATIVE: CASE EVENT DATE: 20230530
